FAERS Safety Report 26011428 (Version 1)
Quarter: 2025Q4

REPORT INFORMATION
  Report Type: Spontaneous
  Country: US (occurrence: None)
  Receive Date: 20251106
  Receipt Date: 20251106
  Transmission Date: 20260119
  Serious: Yes (Other)
  Sender: FDA-CTU
  Company Number: None

PATIENT
  Age: 74 Year
  Sex: Female
  Weight: 96 kg

DRUGS (1)
  1. LUMISIGHT [Suspect]
     Active Substance: PEGULICIANINE
     Indication: Breast cancer
     Dosage: OTHER FREQUENCY : ONCE;?
     Route: 040
     Dates: start: 20251106

REACTIONS (7)
  - Malaise [None]
  - Paraesthesia [None]
  - Cough [None]
  - Injection related reaction [None]
  - Feeling hot [None]
  - Flushing [None]
  - Back pain [None]

NARRATIVE: CASE EVENT DATE: 20251106
